FAERS Safety Report 10945203 (Version 1)
Quarter: 2015Q1

REPORT INFORMATION
  Report Type: Spontaneous
  Country: US (occurrence: None)
  Receive Date: 20150212
  Receipt Date: 20150212
  Transmission Date: 20150721
  Serious: No
  Sender: FDA-Public Use
  Company Number: TPA2011A04228

PATIENT
  Age: 54 Year
  Sex: Male
  Weight: 122.47 kg

DRUGS (3)
  1. ULORIC [Suspect]
     Active Substance: FEBUXOSTAT
     Indication: GOUT
     Route: 048
     Dates: start: 20110717
  2. COZAAR [Concomitant]
     Active Substance: LOSARTAN POTASSIUM
  3. COLCHICINE. [Concomitant]
     Active Substance: COLCHICINE

REACTIONS (4)
  - Nausea [None]
  - Abdominal discomfort [None]
  - Swollen tongue [None]
  - Headache [None]
